FAERS Safety Report 16614102 (Version 2)
Quarter: 2020Q1

REPORT INFORMATION
  Report Type: Spontaneous
  Country: CA (occurrence: CA)
  Receive Date: 20190723
  Receipt Date: 20200127
  Transmission Date: 20200409
  Serious: Yes (Death, Other)
  Sender: FDA-Public Use
  Company Number: CA-AUROBINDO-AUR-APL-2019-042045

PATIENT
  Age: 24 Year
  Sex: Male

DRUGS (8)
  1. PANTOPRAZOLE INJECTION [Suspect]
     Active Substance: PANTOPRAZOLE
     Indication: HAEMATEMESIS
     Dosage: UNK
     Route: 065
  2. PANTOPRAZOLE [Suspect]
     Active Substance: PANTOPRAZOLE
     Indication: HAEMATEMESIS
     Dosage: 40 MILLIGRAM,ONCE
     Route: 042
  3. PANTOPRAZOLE [Suspect]
     Active Substance: PANTOPRAZOLE
     Indication: ABDOMINAL PAIN
  4. SODIUM CHLORIDE. [Suspect]
     Active Substance: SODIUM CHLORIDE
     Indication: HAEMATEMESIS
     Dosage: 100 MILLILITER
     Route: 042
  5. SODIUM CHLORIDE. [Suspect]
     Active Substance: SODIUM CHLORIDE
     Indication: ABDOMINAL PAIN
  6. PANTOPRAZOLE INJECTION [Suspect]
     Active Substance: PANTOPRAZOLE
     Indication: ABDOMINAL PAIN
  7. SODIUM CHLORIDE. [Suspect]
     Active Substance: SODIUM CHLORIDE
     Indication: ABDOMINAL PAIN
  8. SODIUM CHLORIDE. [Suspect]
     Active Substance: SODIUM CHLORIDE
     Indication: HAEMATEMESIS
     Dosage: 100 MILLILITER, ONCE
     Route: 042

REACTIONS (5)
  - Dyspnoea [Fatal]
  - Cardio-respiratory arrest [Fatal]
  - Respiratory failure [Fatal]
  - Endotracheal intubation [Fatal]
  - Oxygen saturation decreased [Fatal]
